FAERS Safety Report 5056088-0 (Version None)
Quarter: 2006Q3

REPORT INFORMATION
  Report Type: 
  Country: None (occurrence: None)
  Receive Date: 20060718
  Receipt Date: 20060718
  Transmission Date: 20061208
  Serious: No
  Sender: FDA-Public Use
  Company Number: None

PATIENT

DRUGS (2)
  1. LISINOPRIL [Suspect]
     Indication: DRUG HYPERSENSITIVITY
     Dosage: 20 MG BID PO
     Route: 048
  2. KEFLEX [Suspect]
     Dosage: 500 MG TID PO
     Route: 048

REACTIONS (2)
  - PHARYNGEAL OEDEMA [None]
  - SWOLLEN TONGUE [None]
